FAERS Safety Report 16900022 (Version 1)
Quarter: 2019Q4

REPORT INFORMATION
  Report Type: Report from Study
  Country: US (occurrence: US)
  Receive Date: 20191009
  Receipt Date: 20191009
  Transmission Date: 20200122
  Serious: Yes (Other)
  Sender: FDA-Public Use
  Company Number: US-MYLANLABS-2019M1091943

PATIENT
  Age: 39 Year
  Sex: Female
  Weight: 44.44 kg

DRUGS (1)
  1. GLATIRAMER ACETATE INJECTION [Suspect]
     Active Substance: GLATIRAMER ACETATE
     Indication: RELAPSING-REMITTING MULTIPLE SCLEROSIS
     Dosage: 40 MILLIGRAM, 3XW

REACTIONS (7)
  - Tunnel vision [Unknown]
  - Dysstasia [Unknown]
  - Injection site pain [Unknown]
  - Dizziness [Unknown]
  - Loss of consciousness [Unknown]
  - Injection site mass [Unknown]
  - Abdominal pain [Unknown]

NARRATIVE: CASE EVENT DATE: 20190926
